FAERS Safety Report 20734111 (Version 2)
Quarter: 2022Q2

REPORT INFORMATION
  Report Type: Spontaneous
  Country: US (occurrence: US)
  Receive Date: 20220421
  Receipt Date: 20220502
  Transmission Date: 20220720
  Serious: No
  Sender: FDA-Public Use
  Company Number: US-TEVA-2022-US-2020978

PATIENT
  Age: 82 Year
  Sex: Male

DRUGS (3)
  1. CLONIDINE [Suspect]
     Active Substance: CLONIDINE
     Route: 065
  2. CLONIDINE HYDROCHLORIDE [Suspect]
     Active Substance: CLONIDINE HYDROCHLORIDE
     Dosage: 0.2 MG/24HR
     Route: 062
     Dates: start: 20220301, end: 20220305
  3. Antibiotic cream [Concomitant]

REACTIONS (5)
  - Blood pressure abnormal [Unknown]
  - Pain in extremity [Unknown]
  - Skin burning sensation [Unknown]
  - Pruritus [Unknown]
  - Skin disorder [Not Recovered/Not Resolved]

NARRATIVE: CASE EVENT DATE: 20220304
